FAERS Safety Report 5046935-0 (Version None)
Quarter: 2006Q2

REPORT INFORMATION
  Report Type: 
  Country: None (occurrence: None)
  Receive Date: 20060630
  Receipt Date: 20060620
  Transmission Date: 20061013
  Serious: Yes (Other)
  Sender: FDA-Public Use
  Company Number: 2006079766

PATIENT
  Sex: Female

DRUGS (2)
  1. ZARONTIN [Suspect]
     Indication: CONVULSION
     Dosage: ORAL
     Route: 048
  2. ETHOSUXIMIDE [Suspect]
     Indication: CONVULSION

REACTIONS (9)
  - APHASIA [None]
  - CEREBROVASCULAR ACCIDENT [None]
  - CONVULSION [None]
  - COORDINATION ABNORMAL [None]
  - EMOTIONAL DISORDER [None]
  - FEELING ABNORMAL [None]
  - MALAISE [None]
  - NERVOUSNESS [None]
  - THERAPEUTIC RESPONSE UNEXPECTED WITH DRUG SUBSTITUTION [None]
